FAERS Safety Report 9560278 (Version 1)
Quarter: 2013Q3

REPORT INFORMATION
  Report Type: Report from Study
  Country: CA (occurrence: CA)
  Receive Date: 20130927
  Receipt Date: 20130927
  Transmission Date: 20140515
  Serious: Yes (Other)
  Sender: FDA-Public Use
  Company Number: CA-UCBSA-098062

PATIENT
  Age: 68 Year
  Sex: Female
  Weight: 81.6 kg

DRUGS (2)
  1. CIMZIA [Suspect]
     Indication: RHEUMATOID ARTHRITIS
     Dosage: DOSE: 400 MG; WEEKS: 0-2-4
     Route: 058
     Dates: start: 20130502, end: 20130626
  2. CIMZIA [Suspect]
     Indication: RHEUMATOID ARTHRITIS
     Route: 058
     Dates: start: 20130710

REACTIONS (3)
  - Oral candidiasis [Unknown]
  - Humerus fracture [Not Recovered/Not Resolved]
  - Fall [Unknown]
